FAERS Safety Report 18512057 (Version 1)
Quarter: 2020Q4

REPORT INFORMATION
  Report Type: Spontaneous
  Country: US (occurrence: US)
  Receive Date: 20201117
  Receipt Date: 20201117
  Transmission Date: 20210114
  Serious: Yes (Hospitalization, Disabling, Other)
  Sender: FDA-Public Use
  Company Number: US-PURDUE-USA-2020-0165540

PATIENT
  Sex: Female

DRUGS (1)
  1. OXYCONTIN [Suspect]
     Active Substance: OXYCODONE HYDROCHLORIDE
     Indication: PRODUCT USED FOR UNKNOWN INDICATION
     Dosage: UNK
     Route: 048

REACTIONS (16)
  - Meniscus injury [Unknown]
  - Pain [Unknown]
  - Arthralgia [Unknown]
  - Knee operation [Unknown]
  - Disturbance in attention [Unknown]
  - Feeling abnormal [Unknown]
  - Drug dependence [Unknown]
  - Disability [Unknown]
  - Anxiety [Unknown]
  - Withdrawal syndrome [Unknown]
  - Heart rate increased [Unknown]
  - Nerve injury [Unknown]
  - Neuralgia [Unknown]
  - Depression [Unknown]
  - Mental disorder [Unknown]
  - Ligament rupture [Unknown]
